FAERS Safety Report 9472474 (Version 3)
Quarter: 2014Q1

REPORT INFORMATION
  Report Type: Other
  Country: FR (occurrence: FR)
  Receive Date: 20130823
  Receipt Date: 20140115
  Transmission Date: 20141002
  Serious: Yes (Life-Threatening, Other)
  Sender: FDA-Public Use
  Company Number: FR-MPIJNJ-2013JNJ000078

PATIENT
  Sex: 0

DRUGS (5)
  1. VELCADE [Suspect]
     Indication: PRODUCT USED FOR UNKNOWN INDICATION
     Dosage: 2.6 MG, QD
     Route: 058
     Dates: start: 20121228, end: 20130610
  2. ENDOXAN [Suspect]
     Indication: PRODUCT USED FOR UNKNOWN INDICATION
     Dosage: UNK
     Route: 048
     Dates: start: 20121228, end: 20130610
  3. RITUXIMAB [Concomitant]
     Dosage: UNK
     Dates: start: 201106, end: 201206
  4. DEXAMETHASONE [Concomitant]
     Dosage: UNK
     Dates: start: 20121228, end: 20130610
  5. AUGMENTIN [Concomitant]
     Indication: PYREXIA
     Dosage: UNK
     Dates: start: 201306

REACTIONS (1)
  - Congestive cardiomyopathy [Recovered/Resolved with Sequelae]
